FAERS Safety Report 7627664-3 (Version None)
Quarter: 2011Q3

REPORT INFORMATION
  Report Type: 
  Country: None (occurrence: None)
  Receive Date: 20110721
  Receipt Date: 20110708
  Transmission Date: 20111222
  Serious: Yes (Hospitalization, Other)
  Sender: FDA-Public Use
  Company Number: US-AMGEN-USASP2011034864

PATIENT
  Age: 63 Year
  Sex: Female

DRUGS (2)
  1. ENBREL [Suspect]
     Indication: PSORIATIC ARTHROPATHY
     Dosage: UNK
  2. METHOTREXATE [Concomitant]
     Dosage: 1 MG, QD

REACTIONS (8)
  - ORAL PAIN [None]
  - FUNGAL SKIN INFECTION [None]
  - JOINT INJURY [None]
  - COUGH [None]
  - CANDIDIASIS [None]
  - SHOULDER OPERATION [None]
  - BRONCHITIS [None]
  - OROPHARYNGEAL PAIN [None]
